FAERS Safety Report 12219252 (Version 4)
Quarter: 2016Q3

REPORT INFORMATION
  Report Type: Spontaneous
  Country: US (occurrence: IT)
  Receive Date: 20160329
  Receipt Date: 20160714
  Transmission Date: 20161109
  Serious: No
  Sender: FDA-Public Use
  Company Number: IT-FRI-1000083480

PATIENT
  Age: 36 Year
  Sex: Female

DRUGS (1)
  1. ASENAPINE [Suspect]
     Active Substance: ASENAPINE
     Indication: MOOD ALTERED
     Dosage: 5 MG
     Route: 060
     Dates: start: 20160229, end: 20160229

REACTIONS (3)
  - Circumoral oedema [Recovered/Resolved]
  - Choking sensation [Recovered/Resolved]
  - Hypoaesthesia oral [Recovered/Resolved]

NARRATIVE: CASE EVENT DATE: 20160301
